FAERS Safety Report 14704896 (Version 4)
Quarter: 2019Q4

REPORT INFORMATION
  Report Type: Report from Study
  Country: FR (occurrence: FR)
  Receive Date: 20180402
  Receipt Date: 20191029
  Transmission Date: 20200122
  Serious: Yes (Death, Hospitalization)
  Sender: FDA-Public Use
  Company Number: PHHO2015FR017661

PATIENT
  Age: 72 Year
  Sex: Female

DRUGS (1)
  1. PAZOPANIB [Suspect]
     Active Substance: PAZOPANIB
     Indication: THYROID CANCER
     Dosage: 400 MG, QD
     Route: 048
     Dates: start: 20141021, end: 20150912

REACTIONS (5)
  - Pleural effusion [Fatal]
  - Pneumonia [Fatal]
  - Palmar-plantar erythrodysaesthesia syndrome [Not Recovered/Not Resolved]
  - Vomiting [Not Recovered/Not Resolved]
  - Nausea [Not Recovered/Not Resolved]

NARRATIVE: CASE EVENT DATE: 20150915
